FAERS Safety Report 4341623-8 (Version None)
Quarter: 2004Q2

REPORT INFORMATION
  Report Type: 
  Country: None (occurrence: None)
  Receive Date: 20040420
  Receipt Date: 20040412
  Transmission Date: 20050107
  Serious: Yes (Other)
  Sender: FDA-Public Use
  Company Number: 200414040GDDC

PATIENT
  Age: 53 Year
  Sex: Female

DRUGS (4)
  1. LORELCO [Suspect]
     Indication: HYPERLIPIDAEMIA
     Dosage: DOSE: UNK
     Route: 048
     Dates: start: 20040128, end: 20040228
  2. OMEPRAZOLE [Concomitant]
     Dosage: DOSE: UNK
     Route: 048
  3. PRAVASTATIN SODIUM [Concomitant]
     Dosage: DOSE: UNK
     Route: 048
  4. AMLODIPINE [Concomitant]
     Dosage: DOSE: UNK
     Route: 048

REACTIONS (1)
  - RHABDOMYOLYSIS [None]
